FAERS Safety Report 8287884-4 (Version None)
Quarter: 2012Q2

REPORT INFORMATION
  Report Type: 
  Country: None (occurrence: None)
  Receive Date: 20120416
  Receipt Date: 20120413
  Transmission Date: 20120825
  Serious: No
  Sender: FDA-Public Use
  Company Number: US-PFIZER INC-2012078687

PATIENT
  Sex: Male
  Weight: 70.295 kg

DRUGS (20)
  1. HALDOL [Concomitant]
     Dosage: UNK
  2. ZOFRAN [Concomitant]
     Dosage: UNK
  3. FLEXERIL [Concomitant]
     Dosage: UNK
  4. CATAPRES [Concomitant]
     Dosage: UNK
  5. LOPRESSOR [Concomitant]
     Dosage: UNK
  6. CELEXA [Suspect]
     Dosage: UNK
  7. ULTRAM [Concomitant]
     Dosage: UNK
  8. DEXTROSE 5% AND SODIUM CHLORIDE 0.45% IN PLASTIC CONTAINER [Concomitant]
     Dosage: 5 %, UNK
  9. LORTAB [Concomitant]
     Dosage: UNK
  10. DIFLUCAN [Concomitant]
     Dosage: UNK
  11. PROTONIX [Concomitant]
     Dosage: UNK
  12. ALBUTEROL [Concomitant]
     Dosage: UNK
  13. VALIUM [Concomitant]
     Dosage: UNK
  14. THIAMINE [Concomitant]
     Dosage: UNK
  15. FOLIC ACID [Concomitant]
     Dosage: UNK
  16. GEODON [Suspect]
     Indication: AGITATION
     Dosage: AS NEEDED EVERY 6 HOURS
     Route: 042
     Dates: start: 20120327, end: 20120401
  17. VISTARIL [Concomitant]
     Dosage: UNK
  18. CYMBALTA [Concomitant]
     Dosage: UNK
  19. COZAAR [Concomitant]
     Dosage: UNK
  20. BUSPAR [Concomitant]
     Dosage: UNK

REACTIONS (1)
  - INCORRECT ROUTE OF DRUG ADMINISTRATION [None]
